FAERS Safety Report 24624484 (Version 1)
Quarter: 2024Q4

REPORT INFORMATION
  Report Type: Spontaneous
  Country: CN (occurrence: CN)
  Receive Date: 20241115
  Receipt Date: 20241115
  Transmission Date: 20250114
  Serious: Yes (Other)
  Sender: BAXTER
  Company Number: None

PATIENT
  Age: 19 Year
  Sex: Female
  Weight: 54 kg

DRUGS (4)
  1. CYCLOPHOSPHAMIDE [Suspect]
     Active Substance: CYCLOPHOSPHAMIDE
     Indication: Soft tissue sarcoma
     Dosage: 1.8 G, ONE TIME IN ONE DAY, DILUTED WITH 500 ML OF SODIUM CHLORIDE
     Route: 041
     Dates: start: 20240403, end: 20240403
  2. SODIUM CHLORIDE [Suspect]
     Active Substance: SODIUM CHLORIDE
     Indication: Medication dilution
     Dosage: 500 ML, ONE TIME IN ONE DAY, USED TO DILUTE 1.8 G OF CYCLOPHOSPHAMIDE
     Route: 041
     Dates: start: 20240403, end: 20240403
  3. SODIUM CHLORIDE [Suspect]
     Active Substance: SODIUM CHLORIDE
     Dosage: 100 ML, ONE TIME IN ONE DAY, USED TO DILUTE 120 MG OF AI DA SHENG
     Route: 041
     Dates: start: 20240403, end: 20240403
  4. EPIRUBICIN HYDROCHLORIDE [Suspect]
     Active Substance: EPIRUBICIN HYDROCHLORIDE
     Indication: Soft tissue sarcoma
     Dosage: 120 MG, ONE TIME IN ONE DAY, DILUTED WITH 100 ML OF SODIUM CHLORIDE
     Route: 041
     Dates: start: 20240403, end: 20240403

REACTIONS (2)
  - Myelosuppression [Recovering/Resolving]
  - White blood cell count decreased [Unknown]

NARRATIVE: CASE EVENT DATE: 20240409
